FAERS Safety Report 25216004 (Version 3)
Quarter: 2025Q2

REPORT INFORMATION
  Report Type: Spontaneous
  Country: AR (occurrence: AR)
  Receive Date: 20250418
  Receipt Date: 20250529
  Transmission Date: 20250717
  Serious: Yes (Other)
  Sender: SANDOZ
  Company Number: AR-002147023-NVSC2025AR010588

PATIENT
  Sex: Female

DRUGS (3)
  1. FULVESTRANT [Suspect]
     Active Substance: FULVESTRANT
     Indication: Breast cancer metastatic
     Dosage: UNK UNK, QMO (ONCE MONTHLY)
     Route: 065
     Dates: start: 20240902
  2. KISQALI [Suspect]
     Active Substance: RIBOCICLIB SUCCINATE
     Indication: Breast cancer metastatic
     Dosage: 600 MG, QD
     Route: 048
     Dates: start: 20240902
  3. ZOMETA [Suspect]
     Active Substance: ZOLEDRONIC ACID
     Indication: Breast cancer metastatic
     Dosage: UNK UNK, QMO (ONCE MONTHLY)
     Route: 065
     Dates: start: 20240902

REACTIONS (8)
  - Metastases to bone [Unknown]
  - Concomitant disease aggravated [Not Recovered/Not Resolved]
  - Gait inability [Unknown]
  - Bone disorder [Unknown]
  - Pain [Not Recovered/Not Resolved]
  - Anxiety [Unknown]
  - Malaise [Unknown]
  - Product supply issue [Unknown]
